FAERS Safety Report 8210440-0 (Version None)
Quarter: 2012Q1

REPORT INFORMATION
  Report Type: 
  Country: None (occurrence: None)
  Receive Date: 20120314
  Receipt Date: 20111208
  Transmission Date: 20120608
  Serious: No
  Sender: FDA-Public Use
  Company Number: US-ASTRAZENECA-2011SE74606

PATIENT
  Age: 71 Year
  Sex: Male

DRUGS (1)
  1. TOPROL-XL [Suspect]
     Dosage: SOMETIMES TAKES TWO TABLETS PER DAY INSTEAD OF ONE WHEN HIS BLOOD PRESSURE IS HIGH
     Route: 048

REACTIONS (2)
  - BLOOD PRESSURE FLUCTUATION [None]
  - INCORRECT DOSE ADMINISTERED [None]
